FAERS Safety Report 4309823-0 (Version None)
Quarter: 2004Q1

REPORT INFORMATION
  Report Type: 
  Country: None (occurrence: None)
  Receive Date: 20040301
  Receipt Date: 20031216
  Transmission Date: 20041129
  Serious: Yes (Death)
  Sender: FDA-Public Use
  Company Number: 1500

PATIENT
  Age: 38 Year
  Sex: Male
  Weight: 117.028 kg

DRUGS (4)
  1. AVINZA [Suspect]
     Indication: NEURITIS
     Dosage: 60 MG QD PO
     Route: 048
     Dates: start: 20031201, end: 20031201
  2. AVINZA [Suspect]
     Indication: POST PROCEDURAL PAIN
     Dosage: 60 MG QD PO
     Route: 048
     Dates: start: 20031201, end: 20031201
  3. CARISOPRODOL [Concomitant]
  4. HYDROCODONE [Concomitant]

REACTIONS (1)
  - OVERDOSE [None]
